FAERS Safety Report 6671325-4 (Version None)
Quarter: 2010Q2

REPORT INFORMATION
  Report Type: 
  Country: None (occurrence: None)
  Receive Date: 20100407
  Receipt Date: 20100325
  Transmission Date: 20101027
  Serious: No
  Sender: FDA-Public Use
  Company Number: US-B.I. PHARMACEUTICALS,INC./RIDGEFIELD-2010-BP-03537BP

PATIENT
  Sex: Female

DRUGS (2)
  1. COMBIVENT [Suspect]
     Indication: BRONCHITIS CHRONIC
     Dosage: 8 PUF
     Route: 055
     Dates: start: 20100324, end: 20100324
  2. COUMADIN [Concomitant]
     Indication: ANAEMIA
     Dates: start: 20080101

REACTIONS (1)
  - RASH [None]
